FAERS Safety Report 14703257 (Version 1)
Quarter: 2018Q2

REPORT INFORMATION
  Report Type: Spontaneous
  Country: FR (occurrence: FR)
  Receive Date: 20180402
  Receipt Date: 20180402
  Transmission Date: 20180711
  Serious: Yes (Hospitalization, Other)
  Sender: FDA-Public Use
  Company Number: FR-MERCK KGAA-2044899

PATIENT
  Age: 53 Year
  Sex: Female

DRUGS (1)
  1. NOVOTHYROX [Suspect]
     Active Substance: LEVOTHYROXINE SODIUM
     Indication: AUTOIMMUNE THYROIDITIS
     Dates: start: 201705

REACTIONS (26)
  - Arthralgia [None]
  - Gastrointestinal disorder [None]
  - Speech disorder [None]
  - Blood thyroid stimulating hormone increased [None]
  - Bone pain [None]
  - Somnolence [None]
  - Apathy [None]
  - Musculoskeletal stiffness [None]
  - Tremor [None]
  - Loss of personal independence in daily activities [None]
  - Dyspnoea [None]
  - Disturbance in attention [None]
  - Dysgraphia [None]
  - Gait disturbance [None]
  - Dizziness [None]
  - Anti-thyroid antibody [None]
  - Insomnia [None]
  - Alopecia [None]
  - Anxiety [None]
  - Hypoaesthesia [None]
  - Arthralgia [None]
  - Myalgia [None]
  - Memory impairment [None]
  - Fatigue [None]
  - Malaise [None]
  - Fear [None]

NARRATIVE: CASE EVENT DATE: 201705
